FAERS Safety Report 19658069 (Version 1)
Quarter: 2021Q3

REPORT INFORMATION
  Report Type: Spontaneous
  Country: IN (occurrence: IN)
  Receive Date: 20210804
  Receipt Date: 20210804
  Transmission Date: 20211014
  Serious: Yes (Other)
  Sender: FDA-Public Use
  Company Number: IN-PFIZER INC-2021622723

PATIENT
  Age: 68 Year
  Sex: Female

DRUGS (3)
  1. PALBACE [Suspect]
     Active Substance: PALBOCICLIB
     Indication: BREAST CANCER METASTATIC
     Dosage: 125 MG, 1X/DAY
     Route: 048
     Dates: start: 20210412
  2. SHELCAL HD [Concomitant]
     Active Substance: CALCIUM CARBONATE\CHOLECALCIFEROL
     Dosage: UNK UNK, 1X/DAY
  3. LETROZOLE. [Concomitant]
     Active Substance: LETROZOLE
     Dosage: 2.5 MG, 1X/DAY

REACTIONS (15)
  - Anaemia [Unknown]
  - Pruritus [Recovered/Resolved]
  - Blood pressure increased [Unknown]
  - Neoplasm progression [Unknown]
  - Insomnia [Unknown]
  - Feeding disorder [Unknown]
  - Pain [Unknown]
  - Venous thrombosis [Unknown]
  - Dizziness [Unknown]
  - Fatigue [Not Recovered/Not Resolved]
  - Decreased appetite [Unknown]
  - Toothache [Unknown]
  - Asthenia [Unknown]
  - Arthralgia [Unknown]
  - Ageusia [Unknown]

NARRATIVE: CASE EVENT DATE: 20210412
